FAERS Safety Report 5155540-7 (Version None)
Quarter: 2006Q4

REPORT INFORMATION
  Report Type: 
  Country: None (occurrence: None)
  Receive Date: 20061113
  Receipt Date: 20061031
  Transmission Date: 20070319
  Serious: Yes (Hospitalization)
  Sender: FDA-Public Use
  Company Number: 2006BI012686

PATIENT
  Age: 41 Year
  Sex: Female
  Weight: 83.9154 kg

DRUGS (9)
  1. AVONEX [Suspect]
     Indication: MULTIPLE SCLEROSIS
     Dosage: 30 UG; QW; IM
     Route: 030
     Dates: start: 19970101, end: 20040101
  2. AVONEX [Suspect]
     Indication: MULTIPLE SCLEROSIS
     Dosage: 30 UG; QW; IM
     Route: 030
     Dates: start: 20040101
  3. KLONOPIN [Concomitant]
  4. ZANAFLEX [Concomitant]
  5. DETROL LA [Concomitant]
  6. MIRALAX [Concomitant]
  7. FIBERCON [Concomitant]
  8. EFFEXOR [Concomitant]
  9. LACTULOSE [Concomitant]

REACTIONS (10)
  - BLADDER OPERATION [None]
  - CALCULUS BLADDER [None]
  - CYSTITIS [None]
  - DEEP VEIN THROMBOSIS [None]
  - DEPRESSION [None]
  - MULTIPLE SCLEROSIS [None]
  - NEUROGENIC BLADDER [None]
  - PARAESTHESIA [None]
  - VISION BLURRED [None]
  - VISUAL DISTURBANCE [None]
